FAERS Safety Report 4761819-0 (Version None)
Quarter: 2005Q3

REPORT INFORMATION
  Report Type: 
  Country: None (occurrence: None)
  Receive Date: 20050906
  Receipt Date: 20040806
  Transmission Date: 20060218
  Serious: Yes (Hospitalization)
  Sender: FDA-Public Use
  Company Number: 200412544JP

PATIENT
  Age: 66 Year
  Sex: Female
  Weight: 56 kg

DRUGS (11)
  1. ARAVA [Suspect]
     Indication: RHEUMATOID ARTHRITIS
     Route: 048
     Dates: start: 20031004, end: 20031208
  2. AMARYL [Suspect]
     Indication: DIABETES MELLITUS
     Route: 048
  3. LOXONIN [Concomitant]
     Indication: RHEUMATOID ARTHRITIS
     Route: 048
  4. SELBEX [Concomitant]
     Indication: GASTRITIS
     Route: 048
  5. SELBEX [Concomitant]
     Indication: PROPHYLAXIS
     Route: 048
  6. GASTER [Concomitant]
     Indication: GASTRITIS
     Route: 048
  7. GASTER [Concomitant]
     Indication: PROPHYLAXIS
     Route: 048
  8. MEDROL [Concomitant]
     Indication: RHEUMATOID ARTHRITIS
     Route: 048
  9. LAC B [Concomitant]
     Route: 048
     Dates: start: 20031212
  10. METHOTREXATE [Concomitant]
     Indication: RHEUMATOID ARTHRITIS
     Dates: start: 20010308, end: 20010823
  11. DIOVAN [Concomitant]
     Indication: HYPERTENSION
     Route: 048

REACTIONS (8)
  - ALOPECIA [None]
  - BLOOD URINE PRESENT [None]
  - CONDITION AGGRAVATED [None]
  - DIARRHOEA [None]
  - HYPERTENSION [None]
  - HYPOGLYCAEMIA [None]
  - PULMONARY TUBERCULOSIS [None]
  - PYREXIA [None]
